FAERS Safety Report 5717180-8 (Version None)
Quarter: 2008Q2

REPORT INFORMATION
  Report Type: 
  Country: None (occurrence: None)
  Receive Date: 20080423
  Receipt Date: 20080402
  Transmission Date: 20081010
  Serious: No
  Sender: FDA-Public Use
  Company Number: D-08-0024

PATIENT
  Age: 85 Year
  Sex: Female

DRUGS (9)
  1. JANTOVEN [Suspect]
     Indication: CARDIAC VALVE PROSTHESIS USER
     Dosage: SEE IMAGE
     Dates: start: 20080201, end: 20080401
  2. JANTOVEN [Suspect]
     Indication: CARDIAC VALVE PROSTHESIS USER
     Dosage: SEE IMAGE
     Dates: start: 20080201, end: 20080401
  3. IMDUR [Concomitant]
  4. VASOTEC [Concomitant]
  5. POTASSIUM CHLORIDE [Concomitant]
  6. FUROSEMIDE [Concomitant]
  7. LANOXIN [Concomitant]
  8. PROTONIX [Concomitant]
  9. MAGNESIUM [Concomitant]

REACTIONS (7)
  - ABDOMINAL DISTENSION [None]
  - ABDOMINAL PAIN [None]
  - ANOREXIA [None]
  - DRUG HYPERSENSITIVITY [None]
  - FLATULENCE [None]
  - NAUSEA [None]
  - OEDEMA PERIPHERAL [None]
